FAERS Safety Report 4877096-6 (Version None)
Quarter: 2005Q4

REPORT INFORMATION
  Report Type: 
  Country: None (occurrence: None)
  Receive Date: 20051206
  Receipt Date: 20050830
  Transmission Date: 20060501
  Serious: No
  Sender: FDA-Public Use
  Company Number: USA0508106109

PATIENT
  Age: 50 Year
  Sex: Female

DRUGS (6)
  1. CYMBALTA [Suspect]
     Indication: DEPRESSION
     Dosage: 30 MG/2 DAY
     Dates: start: 20041101, end: 20050820
  2. LEXAPRO [Concomitant]
  3. ETHINYL ESTRADIOL TAB [Concomitant]
  4. ESTROGENS CONJUGATED W/PROGESTERONE [Concomitant]
  5. LORATADINE [Concomitant]
  6. ZOCOR [Concomitant]

REACTIONS (7)
  - CONSTIPATION [None]
  - DRY MOUTH [None]
  - FEELING ABNORMAL [None]
  - HOT FLUSH [None]
  - HYPERHIDROSIS [None]
  - MULTIPLE ALLERGIES [None]
  - NIGHT SWEATS [None]
